FAERS Safety Report 22182184 (Version 1)
Quarter: 2023Q2

REPORT INFORMATION
  Report Type: Spontaneous
  Country: None (occurrence: CN)
  Receive Date: 20230406
  Receipt Date: 20230406
  Transmission Date: 20230721
  Serious: Yes (Hospitalization, Other)
  Sender: FDA-Public Use
  Company Number: CN-ACIC Fine Chemicals Inc-2139994

PATIENT
  Age: 58 Year
  Sex: Female

DRUGS (4)
  1. TRANEXAMIC ACID [Suspect]
     Active Substance: TRANEXAMIC ACID
     Indication: Product used for unknown indication
     Route: 042
  2. CEFOXITIN [Suspect]
     Active Substance: CEFOXITIN SODIUM
     Route: 042
  3. BATROXOBIN [Suspect]
     Active Substance: BATROXOBIN
     Route: 042
  4. BEVACIZUMAB [Concomitant]
     Active Substance: BEVACIZUMAB

REACTIONS (4)
  - Metastases to bladder [Unknown]
  - Urethral haemorrhage [Recovered/Resolved]
  - Urinary incontinence [Recovered/Resolved]
  - Decreased appetite [Recovered/Resolved]
